FAERS Safety Report 4495248-4 (Version None)
Quarter: 2004Q4

REPORT INFORMATION
  Report Type: 
  Country: None (occurrence: None)
  Receive Date: 20041108
  Receipt Date: 20040728
  Transmission Date: 20050328
  Serious: No
  Sender: FDA-Public Use
  Company Number: US-GLAXOSMITHKLINE-A0520090A

PATIENT
  Age: 74 Year
  Sex: Female

DRUGS (7)
  1. AVANDAMET [Suspect]
     Dosage: 4MG TWICE PER DAY
     Route: 048
  2. TOPROL-XL [Concomitant]
  3. TRIAMTERENE [Concomitant]
  4. ACCUPRIL [Concomitant]
  5. PREVACID [Concomitant]
  6. MEVACOR [Concomitant]
  7. ASPIRIN [Concomitant]

REACTIONS (2)
  - ASTHENIA [None]
  - NAUSEA [None]
